FAERS Safety Report 8158001 (Version 2)
Quarter: 2012Q4

REPORT INFORMATION
  Report Type: 
  Country: US (occurrence: US)
  Receive Date: 20110927
  Receipt Date: 20121005
  Transmission Date: 20130627
  Serious: No
  Sender: FDA-Public Use
  Company Number: US-BRISTOL-MYERS SQUIBB COMPANY-15662737

PATIENT
  Age: 37 Year
  Sex: Female

DRUGS (7)
  1. AVAPRO [Suspect]
     Indication: HYPERTENSION
     Dosage: 23Mar2011.
     Route: 048
     Dates: start: 200810
  2. METOPROLOL [Concomitant]
  3. SYNTHROID [Concomitant]
  4. METFORMIN [Concomitant]
  5. VYVANSE [Concomitant]
  6. LUMIGAN [Concomitant]
     Dosage: eye drops
  7. LEVONORGESTREL [Concomitant]

REACTIONS (2)
  - Blood pressure increased [Recovering/Resolving]
  - Visual impairment [Unknown]
